FAERS Safety Report 22955471 (Version 3)
Quarter: 2024Q2

REPORT INFORMATION
  Report Type: Spontaneous
  Country: US (occurrence: US)
  Receive Date: 20230918
  Receipt Date: 20240628
  Transmission Date: 20240716
  Serious: No
  Sender: FDA-Public Use
  Company Number: US-SANDOZ-SDZ2023US009663

PATIENT
  Sex: Male
  Weight: 39 kg

DRUGS (4)
  1. OMNITROPE [Suspect]
     Active Substance: SOMATROPIN
     Indication: Hypopituitarism
     Dosage: 2 MG, QD, 6 DAYS A WEEK
     Route: 058
     Dates: start: 20230711
  2. OMNITROPE [Suspect]
     Active Substance: SOMATROPIN
     Indication: Hypopituitarism
     Dosage: 2 MG, QD, 6 DAYS A WEEK
     Route: 058
     Dates: start: 20230711
  3. OMNITROPE [Suspect]
     Active Substance: SOMATROPIN
     Dosage: 2 MG PER DAY 6 DAYS A WEEK
     Route: 065
     Dates: start: 20230717
  4. OMNITROPE [Suspect]
     Active Substance: SOMATROPIN
     Dosage: 2 MG PER DAY 6 DAYS A WEEK
     Route: 065
     Dates: start: 20230717

REACTIONS (2)
  - Headache [Recovered/Resolved]
  - Device leakage [Unknown]
